FAERS Safety Report 8476322-4 (Version None)
Quarter: 2012Q2

REPORT INFORMATION
  Report Type: 
  Country: None (occurrence: None)
  Receive Date: 20120628
  Receipt Date: 20120626
  Transmission Date: 20120825
  Serious: Yes (Other)
  Sender: FDA-Public Use
  Company Number: US-BAYER-2012-061224

PATIENT
  Age: 54 Year
  Sex: Male

DRUGS (2)
  1. NEXAVAR [Suspect]
     Indication: HEPATIC NEOPLASM MALIGNANT
     Dosage: 400 MG, BID
     Dates: start: 20120608, end: 20120613
  2. NEXAVAR [Suspect]
     Dosage: 400 MG, BID
     Route: 048
     Dates: start: 20120601

REACTIONS (5)
  - PNEUMONIA [None]
  - PAIN IN EXTREMITY [None]
  - AMMONIA INCREASED [None]
  - VOMITING [None]
  - GLOSSODYNIA [None]
